FAERS Safety Report 12056563 (Version 1)
Quarter: 2016Q1

REPORT INFORMATION
  Report Type: Report from Study
  Country: US (occurrence: US)
  Receive Date: 20160209
  Receipt Date: 20160209
  Transmission Date: 20160526
  Serious: No
  Sender: FDA-Public Use
  Company Number: US-ABBVIE-15P-163-1470969-00

PATIENT
  Sex: Female
  Weight: 62.2 kg

DRUGS (3)
  1. HUMIRA [Suspect]
     Active Substance: ADALIMUMAB
     Indication: PSORIASIS
     Dosage: LOADING DOSE
     Route: 065
     Dates: start: 201409, end: 201409
  2. HUMIRA [Suspect]
     Active Substance: ADALIMUMAB
     Dosage: STARTED ONE WEEK AFTER 80 MG DOSE
     Route: 065
     Dates: start: 2014, end: 201503
  3. FLINTSTONES VITAMINS [Concomitant]
     Indication: VITAMIN SUPPLEMENTATION

REACTIONS (2)
  - Psoriasis [Not Recovered/Not Resolved]
  - Exposure during pregnancy [Unknown]

NARRATIVE: CASE EVENT DATE: 2015
